FAERS Safety Report 9286425 (Version 1)
Quarter: 2013Q2

REPORT INFORMATION
  Report Type: Report from Study
  Country: MX (occurrence: MX)
  Receive Date: 20130513
  Receipt Date: 20130513
  Transmission Date: 20140414
  Serious: Yes (Other)
  Sender: FDA-Public Use
  Company Number: PHHY2013MX046571

PATIENT
  Age: 56 Year
  Sex: Female

DRUGS (2)
  1. ACLASTA [Suspect]
     Indication: OSTEOPOROSIS
     Dosage: 5 MG/ 100 ML, YEARLY
     Route: 042
     Dates: start: 201004
  2. APROVEL [Concomitant]
     Indication: HYPERTENSION
     Dosage: UNK UKN, DAILY
     Dates: start: 2008

REACTIONS (5)
  - Parkinson^s disease [Not Recovered/Not Resolved]
  - Tooth abscess [Recovered/Resolved]
  - Nervous system disorder [Not Recovered/Not Resolved]
  - Tremor [Not Recovered/Not Resolved]
  - Tooth disorder [Recovered/Resolved]
